FAERS Safety Report 5428693-0 (Version None)
Quarter: 2007Q3

REPORT INFORMATION
  Report Type: 
  Country: None (occurrence: None)
  Receive Date: 20070828
  Receipt Date: 20070816
  Transmission Date: 20080115
  Serious: Yes (Hospitalization)
  Sender: FDA-Public Use
  Company Number: US-SHR-US-2007-030740

PATIENT
  Age: 56 Year
  Sex: Female

DRUGS (2)
  1. BETASERON [Suspect]
     Dosage: 4 MIU, EVERY 2D
     Route: 058
     Dates: start: 20070504
  2. BETASERON [Suspect]
     Dosage: 6 MIU, EVERY 2D
     Route: 058

REACTIONS (2)
  - ASTHMA [None]
  - BLOOD GASES ABNORMAL [None]
